FAERS Safety Report 8822910 (Version 2)
Quarter: 2012Q4

REPORT INFORMATION
  Report Type: 
  Country: DE (occurrence: DE)
  Receive Date: 20121003
  Receipt Date: 20121015
  Transmission Date: 20130627
  Serious: No
  Sender: FDA-Public Use
  Company Number: PHHY2012DE083920

PATIENT
  Sex: Male
  Weight: 126 kg

DRUGS (17)
  1. RASILEZ [Suspect]
     Indication: HYPERTENSION
     Dosage: 1 DF, QD
  2. EXFORGE [Suspect]
     Indication: HYPERTENSION
     Dosage: 1 DF (160 mg vals and 10 mg HCTZ), QD
  3. HYDROCHLOROTHIAZIDE [Suspect]
     Indication: HYPERTENSION
     Dosage: 1 DF, QD
  4. CUBICIN [Concomitant]
     Dosage: 4 mg/kg bodyweight every 24 hrs
     Route: 042
     Dates: start: 20110502, end: 20110620
  5. CIPROFLOXACIN [Concomitant]
     Dosage: 1 DF, BID
     Route: 048
  6. NOVORAPID [Concomitant]
  7. PROTAPHANE MC [Concomitant]
     Dosage: 26 IU, QD
  8. ACETYLSALICYLIC ACID [Concomitant]
     Dosage: 1 DF, QD
  9. TOREM [Concomitant]
     Dosage: 1 DF, QD
  10. PANTOZOL [Concomitant]
     Dosage: 1 DF, QD
  11. MIRTAZAPINE [Concomitant]
     Dosage: 1 DF, QD
  12. ZOPICLON [Concomitant]
     Dosage: 2 DF, QD
  13. MOVICOL [Concomitant]
     Dosage: 1 DF, QD
  14. DUROGESIC [Concomitant]
     Dosage: 75 ug, UNK
     Dates: end: 20110608
  15. VIGANTOLETTEN [Concomitant]
     Dosage: 1 DF, QD
  16. SIMVASTATIN [Concomitant]
     Dosage: 1 DF, QD
  17. CITALOPRAM [Concomitant]
     Dosage: 1 DF, QD

REACTIONS (1)
  - Blood creatinine increased [Recovering/Resolving]
